FAERS Safety Report 21909931 (Version 2)
Quarter: 2023Q4

REPORT INFORMATION
  Report Type: Spontaneous
  Country: US (occurrence: US)
  Receive Date: 20230125
  Receipt Date: 20231003
  Transmission Date: 20240110
  Serious: Yes (Other)
  Sender: FDA-Public Use
  Company Number: US-NAPPMUNDI-GBR-2023-0104579

PATIENT
  Age: 32 Year
  Sex: Female

DRUGS (4)
  1. BUPRENORPHINE [Suspect]
     Active Substance: BUPRENORPHINE
     Indication: Product used for unknown indication
     Dosage: 4 MILLIGRAM, DAILY BEFORE PREGNANCY
     Route: 065
  2. BUPRENORPHINE [Suspect]
     Active Substance: BUPRENORPHINE
     Dosage: INCREASED TO 6 MG DAILY BY TIME OF DELIVERY
     Route: 065
  3. LABETALOL HYDROCHLORIDE [Suspect]
     Active Substance: LABETALOL HYDROCHLORIDE
     Indication: Hypertension
     Dosage: LH DOSE FLUCTUATED BETWEEN 50 MG AND 200 MG DAILY
     Route: 065
  4. LABETALOL HYDROCHLORIDE [Suspect]
     Active Substance: LABETALOL HYDROCHLORIDE
     Indication: Presyncope

REACTIONS (3)
  - Superimposed pre-eclampsia [Unknown]
  - Foetal growth restriction [Unknown]
  - Exposure during pregnancy [Unknown]
